FAERS Safety Report 5826489-9 (Version None)
Quarter: 2008Q3

REPORT INFORMATION
  Report Type: 
  Country: None (occurrence: None)
  Receive Date: 20080724
  Receipt Date: 20080626
  Transmission Date: 20090109
  Serious: No
  Sender: FDA-Public Use
  Company Number: ADE# 08-095

PATIENT
  Sex: Female
  Weight: 72.5755 kg

DRUGS (2)
  1. METOPROLOL TARTRATE [Suspect]
     Indication: HYPERTENSION
     Dosage: 1 TABLET DAILY;  FOR COUPLE OF YEARS.
  2. AMBIEN [Concomitant]

REACTIONS (3)
  - HYPOAESTHESIA ORAL [None]
  - NERVOUSNESS [None]
  - PHARMACEUTICAL PRODUCT COMPLAINT [None]
